FAERS Safety Report 6981596-2 (Version None)
Quarter: 2010Q3

REPORT INFORMATION
  Report Type: 
  Country: None (occurrence: None)
  Receive Date: 20100914
  Receipt Date: 20100902
  Transmission Date: 20110219
  Serious: Yes (Hospitalization, Other)
  Sender: FDA-Public Use
  Company Number: US-WYE-H17352510

PATIENT
  Age: 52 Year
  Sex: Female
  Weight: 89.89 kg

DRUGS (7)
  1. PRISTIQ [Suspect]
     Indication: DEPRESSION
     Dosage: ^LOWEST DOSE^
     Route: 048
     Dates: start: 20090801, end: 20091001
  2. PRISTIQ [Suspect]
     Dosage: WEANED HERSELF OFF OF ALL MEDICATIONS
     Route: 048
     Dates: start: 20091001, end: 20091201
  3. AMBIEN [Suspect]
     Indication: INSOMNIA
     Dosage: UNKNOWN
     Dates: end: 20091101
  4. TOPAMAX [Suspect]
     Indication: DEPRESSION
     Dosage: UNKNOWN
     Dates: start: 20100201, end: 20100101
  5. TOPAMAX [Suspect]
     Indication: FIBROMYALGIA
  6. KLONOPIN [Suspect]
     Dosage: UNKNOWN
  7. MOTRIN [Suspect]
     Dosage: UNKNOWN
     Dates: end: 20100101

REACTIONS (19)
  - ACTIVITIES OF DAILY LIVING IMPAIRED [None]
  - AMNESIA [None]
  - BLOOD PRESSURE INCREASED [None]
  - BLOOD TRIGLYCERIDES ABNORMAL [None]
  - COAGULATION TEST ABNORMAL [None]
  - CONDITION AGGRAVATED [None]
  - CONFUSIONAL STATE [None]
  - COORDINATION ABNORMAL [None]
  - DRUG WITHDRAWAL SYNDROME [None]
  - FALL [None]
  - HAEMORRHAGE [None]
  - HEADACHE [None]
  - IMPAIRED DRIVING ABILITY [None]
  - INNER EAR DISORDER [None]
  - INSOMNIA [None]
  - INTENTIONAL DRUG MISUSE [None]
  - MUSCULOSKELETAL STIFFNESS [None]
  - NEUROLEPTIC MALIGNANT SYNDROME [None]
  - TRANSIENT ISCHAEMIC ATTACK [None]
